FAERS Safety Report 19384782 (Version 1)
Quarter: 2021Q2

REPORT INFORMATION
  Report Type: Other
  Country: CA (occurrence: CA)
  Receive Date: 20210608
  Receipt Date: 20210608
  Transmission Date: 20210717
  Serious: Yes (Other)
  Sender: FDA-Public Use
  Company Number: CA-CELLTRION INC.-2021CA007436

PATIENT

DRUGS (6)
  1. KEPPRA [Concomitant]
     Active Substance: LEVETIRACETAM
  2. RITUXIMAB (UNKNOWN) [Suspect]
     Active Substance: RITUXIMAB
     Indication: GRANULOMATOSIS WITH POLYANGIITIS
     Dosage: 1000 MG
     Route: 042
  3. ATIVAN [Concomitant]
     Active Substance: LORAZEPAM
  4. CICLOSPORIN [Concomitant]
     Active Substance: CYCLOSPORINE
     Route: 065
  5. LACOSAMIDE. [Concomitant]
     Active Substance: LACOSAMIDE
  6. NITROGLYCERIN. [Concomitant]
     Active Substance: NITROGLYCERIN

REACTIONS (6)
  - Eye disorder [Unknown]
  - Drooling [Unknown]
  - Helicobacter infection [Unknown]
  - Intentional product use issue [Unknown]
  - Asthenia [Unknown]
  - Off label use [Unknown]
